FAERS Safety Report 7688978-4 (Version None)
Quarter: 2011Q3

REPORT INFORMATION
  Report Type: 
  Country: None (occurrence: None)
  Receive Date: 20110817
  Receipt Date: 20110811
  Transmission Date: 20111222
  Serious: Yes (Life-Threatening)
  Sender: FDA-Public Use
  Company Number: PHHY2011DE72706

PATIENT
  Sex: Female

DRUGS (2)
  1. RASILEZ [Suspect]
     Dosage: 1 DF, QD
     Dates: end: 20110101
  2. INDAPAMIDE [Suspect]
     Dosage: UNK
     Dates: end: 20110101

REACTIONS (3)
  - HYPONATRAEMIA [None]
  - BRAIN OEDEMA [None]
  - NEUROLOGICAL SYMPTOM [None]
